FAERS Safety Report 8362340 (Version 2)
Quarter: 2015Q1

REPORT INFORMATION
  Report Type: Report from Study
  Country: US (occurrence: US)
  Receive Date: 20120130
  Receipt Date: 20150226
  Transmission Date: 20150721
  Serious: Yes (Death, Hospitalization)
  Sender: FDA-Public Use
  Company Number: US-ROCHE-1034537

PATIENT
  Sex: Female

DRUGS (23)
  1. BONIVA [Suspect]
     Active Substance: IBANDRONATE SODIUM
     Indication: PRODUCT USED FOR UNKNOWN INDICATION
     Route: 065
  2. GEMZAR [Concomitant]
     Active Substance: GEMCITABINE HYDROCHLORIDE
     Route: 042
  3. TAXOTERE [Concomitant]
     Active Substance: DOCETAXEL
     Route: 065
     Dates: start: 20070308
  4. DIPHENHYDRAMINE [Concomitant]
     Active Substance: DIPHENHYDRAMINE
     Route: 042
  5. EMEND [Concomitant]
     Active Substance: APREPITANT
     Route: 042
  6. CISPLATIN. [Concomitant]
     Active Substance: CISPLATIN
     Route: 042
  7. AVASTIN [Suspect]
     Active Substance: BEVACIZUMAB
     Indication: ADENOCARCINOMA
  8. PEGFILGRASTIM [Concomitant]
     Active Substance: PEGFILGRASTIM
     Route: 065
  9. ACIPHEX [Concomitant]
     Active Substance: RABEPRAZOLE SODIUM
     Route: 065
  10. ROXICET [Concomitant]
     Active Substance: ACETAMINOPHEN\OXYCODONE HYDROCHLORIDE
     Dosage: 5/325 MG AS NEEDED
     Route: 065
  11. TAVIST ALLERGY [Concomitant]
     Active Substance: CLEMASTINE FUMARATE
  12. ALOXI [Concomitant]
     Active Substance: PALONOSETRON HYDROCHLORIDE
     Route: 042
  13. LOMOTIL (UNITED STATES) [Concomitant]
     Dosage: TWO TO FOUR PER DAY.
     Route: 065
  14. MAGNESIUM SULPHATE [Concomitant]
     Active Substance: MAGNESIUM SULFATE
     Route: 065
  15. EMEND [Concomitant]
     Active Substance: APREPITANT
     Route: 042
  16. AVASTIN [Suspect]
     Active Substance: BEVACIZUMAB
     Indication: LUNG NEOPLASM MALIGNANT
     Route: 042
     Dates: start: 20070308
  17. TORADOL [Suspect]
     Active Substance: KETOROLAC TROMETHAMINE
     Indication: PRODUCT USED FOR UNKNOWN INDICATION
     Route: 065
  18. MANNITOL. [Concomitant]
     Active Substance: MANNITOL
     Route: 065
  19. PROMETHAZINE [Concomitant]
     Active Substance: PROMETHAZINE\PROMETHAZINE HYDROCHLORIDE
     Route: 065
  20. ARANESP [Concomitant]
     Active Substance: DARBEPOETIN ALFA
     Route: 042
  21. CARBOPLATIN. [Concomitant]
     Active Substance: CARBOPLATIN
     Route: 065
     Dates: start: 20070308
  22. DEXAMETHASONE. [Concomitant]
     Active Substance: DEXAMETHASONE
     Route: 042
  23. ARANESP [Concomitant]
     Active Substance: DARBEPOETIN ALFA
     Route: 042

REACTIONS (10)
  - Dyspepsia [Unknown]
  - Device related infection [Unknown]
  - Fatigue [Unknown]
  - Pain [Unknown]
  - Dysphagia [Unknown]
  - Cellulitis [Unknown]
  - Dehydration [Unknown]
  - Lung carcinoma cell type unspecified recurrent [Unknown]
  - Death [Fatal]
  - Choking [Unknown]
